FAERS Safety Report 9883243 (Version 1)
Quarter: 2014Q1

REPORT INFORMATION
  Report Type: Report from Study
  Country: US (occurrence: US)
  Receive Date: 20140209
  Receipt Date: 20140209
  Transmission Date: 20141002
  Serious: Yes (Death)
  Sender: FDA-Public Use
  Company Number: US-ROCHE-1324775

PATIENT
  Sex: Female
  Weight: 68.55 kg

DRUGS (16)
  1. AVASTIN [Suspect]
     Indication: OVARIAN CANCER
     Route: 042
     Dates: start: 20110509
  2. AVASTIN [Suspect]
     Route: 042
     Dates: start: 20110608
  3. AVASTIN [Suspect]
     Route: 042
     Dates: start: 20110615
  4. AVASTIN [Suspect]
     Route: 042
     Dates: start: 20110622
  5. AVASTIN [Suspect]
     Route: 042
     Dates: start: 20110630
  6. AVASTIN [Suspect]
     Route: 042
     Dates: start: 20110706
  7. AVASTIN [Suspect]
     Route: 042
     Dates: start: 20110713
  8. DURAGESIC [Concomitant]
     Dosage: PATCH
     Route: 065
  9. ALOXI [Concomitant]
     Route: 042
  10. NEULASTA [Concomitant]
     Route: 058
  11. VICODIN [Concomitant]
     Dosage: PRN
     Route: 065
  12. ZOFRAN [Concomitant]
     Route: 042
  13. DECADRON [Concomitant]
     Route: 042
  14. GEMZAR [Concomitant]
     Route: 042
  15. COMPAZINE [Concomitant]
     Indication: NAUSEA
     Dosage: PRN
     Route: 065
  16. PLAVIX [Concomitant]

REACTIONS (9)
  - Death [Fatal]
  - Off label use [Unknown]
  - Diarrhoea [Unknown]
  - Constipation [Unknown]
  - Back pain [Unknown]
  - Pain in extremity [Unknown]
  - Dyspnoea exertional [Unknown]
  - Dizziness [Unknown]
  - Platelet count decreased [Unknown]
